FAERS Safety Report 9567977 (Version 2)
Quarter: 2013Q3

REPORT INFORMATION
  Report Type: Spontaneous
  Country: US (occurrence: US)
  Receive Date: 20130930
  Receipt Date: 20130930
  Transmission Date: 20140515
  Serious: No
  Sender: FDA-Public Use
  Company Number: US-AMGEN-USASP2013037485

PATIENT
  Age: 54 Year
  Sex: Female
  Weight: 58.96 kg

DRUGS (8)
  1. ENBREL [Suspect]
     Indication: PRODUCT USED FOR UNKNOWN INDICATION
     Dosage: 50 MG, EVERY WEEK FOR 30 DAYS
     Route: 058
  2. ENBREL [Suspect]
  3. FOLAMIN [Concomitant]
     Dosage: UNK
  4. PREDNISONE [Concomitant]
     Dosage: 1 MG, UNK
  5. METHOTREXATE [Concomitant]
     Dosage: 2.5 MG, UNK
  6. FAMOTIDINE [Concomitant]
     Dosage: 40 MG, UNK
  7. MULTIVITAMINS, PLAIN [Concomitant]
     Dosage: UNK
  8. VALACYCLOVIR HCL [Concomitant]
     Dosage: 500 MG, UNK

REACTIONS (6)
  - Pain [Unknown]
  - Therapeutic response decreased [Unknown]
  - Injection site extravasation [Unknown]
  - Nasopharyngitis [Recovered/Resolved]
  - Oral herpes [Recovering/Resolving]
  - Viral infection [Recovering/Resolving]
